FAERS Safety Report 8524718-4 (Version None)
Quarter: 2012Q3

REPORT INFORMATION
  Report Type: 
  Country: None (occurrence: None)
  Receive Date: 20120720
  Receipt Date: 20120711
  Transmission Date: 20120928
  Serious: Yes (Hospitalization, Other)
  Sender: FDA-Public Use
  Company Number: US-ROCHE-1077701

PATIENT
  Sex: Male
  Weight: 81.72 kg

DRUGS (6)
  1. PRILOSEC [Concomitant]
     Route: 048
  2. RIBAVIRIN [Suspect]
     Indication: HEPATITIS C
     Route: 048
     Dates: start: 20120319, end: 20120613
  3. METFORMIN HYDROCHLORIDE [Concomitant]
     Indication: DIABETES MELLITUS
     Route: 048
  4. MAGNESIUM SULFATE [Concomitant]
  5. PEGASYS [Suspect]
     Indication: HEPATITIS C
     Route: 058
     Dates: start: 20120319, end: 20120613
  6. TELAPREVIR [Suspect]
     Indication: HEPATITIS C
     Route: 048
     Dates: start: 20120319, end: 20120613

REACTIONS (4)
  - ANAEMIA [None]
  - VENTRICULAR TACHYCARDIA [None]
  - ADVERSE REACTION [None]
  - RETINOPATHY [None]
